FAERS Safety Report 19546455 (Version 2)
Quarter: 2022Q3

REPORT INFORMATION
  Report Type: Spontaneous
  Country: US (occurrence: US)
  Receive Date: 20210714
  Receipt Date: 20220725
  Transmission Date: 20221027
  Serious: Yes (Hospitalization)
  Sender: FDA-Public Use
  Company Number: US-LUPIN PHARMACEUTICALS INC.-2021-11724

PATIENT
  Age: 35 Year
  Sex: Female

DRUGS (22)
  1. ZOLPIDEM [Suspect]
     Active Substance: ZOLPIDEM TARTRATE
     Indication: Persistent genital arousal disorder
     Dosage: UNK
     Route: 065
     Dates: start: 201806
  2. QUETIAPINE FUMARATE [Suspect]
     Active Substance: QUETIAPINE FUMARATE
     Indication: Depression
     Dosage: UNK
     Route: 065
  3. DESVENLAFAXINE [Suspect]
     Active Substance: DESVENLAFAXINE
     Indication: Depression
     Dosage: UNK
     Route: 065
  4. BUPROPION [Suspect]
     Active Substance: BUPROPION
     Indication: Depression
     Dosage: UNK
     Route: 065
  5. LURASIDONE [Suspect]
     Active Substance: LURASIDONE
     Indication: Depression
     Dosage: 20 MILLIGRAM
     Route: 065
  6. LURASIDONE [Suspect]
     Active Substance: LURASIDONE
     Dosage: 40 MILLIGRAM
     Route: 065
  7. FLUOXETINE [Suspect]
     Active Substance: FLUOXETINE HYDROCHLORIDE
     Indication: Depression
     Dosage: UNK
     Route: 065
  8. PRAMIPEXOLE [Suspect]
     Active Substance: PRAMIPEXOLE
     Indication: Persistent genital arousal disorder
     Dosage: 0.125 MILLIGRAM, TID
     Route: 065
     Dates: start: 201911
  9. PRAMIPEXOLE [Suspect]
     Active Substance: PRAMIPEXOLE
     Dosage: UNK,0.125 MG TWICE A DAY AND 0.250MG AT NIGHT
     Route: 065
     Dates: start: 2020
  10. ALPRAZOLAM [Suspect]
     Active Substance: ALPRAZOLAM
     Indication: Anxiety
     Dosage: UNK
     Route: 065
  11. ESTROGENS [Suspect]
     Active Substance: ESTROGENS
     Indication: Persistent genital arousal disorder
     Dosage: UNK
     Route: 061
  12. ETHINYL ESTRADIOL [Suspect]
     Active Substance: ETHINYL ESTRADIOL
     Indication: Persistent genital arousal disorder
     Dosage: UNK,RING FORMULATION
     Route: 067
  13. TRAZODONE [Suspect]
     Active Substance: TRAZODONE HYDROCHLORIDE
     Indication: Depression
     Dosage: UNK
     Route: 065
  14. LEVOMILNACIPRAN [Suspect]
     Active Substance: LEVOMILNACIPRAN
     Indication: Anxiety
     Dosage: UNK
     Route: 065
     Dates: start: 2018
  15. VENLAFAXINE [Suspect]
     Active Substance: VENLAFAXINE HYDROCHLORIDE
     Indication: Depression
     Dosage: UNK
     Route: 065
  16. MIRABEGRON [Suspect]
     Active Substance: MIRABEGRON
     Indication: Micturition urgency
     Dosage: UNK
     Route: 065
     Dates: start: 201807
  17. AMITRIPTYLINE [Suspect]
     Active Substance: AMITRIPTYLINE
     Indication: Depression
     Dosage: UNK
     Route: 065
  18. VILAZODONE [Suspect]
     Active Substance: VILAZODONE
     Indication: Depression
     Dosage: UNK
     Route: 065
  19. VARENICLINE [Suspect]
     Active Substance: VARENICLINE
     Indication: Persistent genital arousal disorder
     Dosage: UNK
     Route: 065
     Dates: start: 201806
  20. ETONOGESTREL [Suspect]
     Active Substance: ETONOGESTREL
     Indication: Persistent genital arousal disorder
     Dosage: UNK,RING FORMULATION
     Route: 067
  21. SERTRALINE [Concomitant]
     Active Substance: SERTRALINE HYDROCHLORIDE
     Indication: Anxiety
     Dosage: UNK
     Route: 065
     Dates: start: 201806
  22. TRAMADOL [Concomitant]
     Active Substance: TRAMADOL
     Indication: Persistent genital arousal disorder
     Dosage: UNK
     Route: 065

REACTIONS (5)
  - Persistent genital arousal disorder [Recovering/Resolving]
  - Condition aggravated [Recovering/Resolving]
  - Withdrawal syndrome [Unknown]
  - Paradoxical drug reaction [Unknown]
  - Drug ineffective [Unknown]
